FAERS Safety Report 6456556-0 (Version None)
Quarter: 2009Q4

REPORT INFORMATION
  Report Type: 
  Country: None (occurrence: None)
  Receive Date: 20091120
  Receipt Date: 20091116
  Transmission Date: 20100525
  Serious: Yes (Life-Threatening, Hospitalization)
  Sender: FDA-Public Use
  Company Number: 09US005061

PATIENT
  Age: 43 Year
  Sex: Female

DRUGS (1)
  1. IBUPROFEN RX 600 MG 167 (IBUPROFEN) TABLET [Suspect]
     Indication: INTENTIONAL OVERDOSE
     Dosage: 95400 MG, SINGLE, ORAL
     Route: 048

REACTIONS (13)
  - BEZOAR [None]
  - BLOOD POTASSIUM DECREASED [None]
  - BLOOD PRESSURE DECREASED [None]
  - BLOOD THYROID STIMULATING HORMONE INCREASED [None]
  - COMA [None]
  - CONTINUOUS HAEMODIAFILTRATION [None]
  - HEART RATE DECREASED [None]
  - HYPOTENSION [None]
  - METABOLIC ACIDOSIS [None]
  - OVERDOSE [None]
  - RESPIRATORY FAILURE [None]
  - THYROXINE DECREASED [None]
  - UNRESPONSIVE TO STIMULI [None]
